FAERS Safety Report 22111792 (Version 1)
Quarter: 2023Q1

REPORT INFORMATION
  Report Type: Spontaneous
  Country: ES (occurrence: ES)
  Receive Date: 20230318
  Receipt Date: 20230318
  Transmission Date: 20230418
  Serious: Yes (Hospitalization, Other)
  Sender: FDA-Public Use
  Company Number: ES-NOVPHSZ-PHHO2019ES003140

PATIENT
  Age: 65 Year
  Sex: Female
  Weight: 83 kg

DRUGS (5)
  1. AMOXICILLIN [Suspect]
     Active Substance: AMOXICILLIN
     Indication: Periodontitis
     Dosage: 750 MILLIGRAM
     Route: 048
     Dates: start: 20190311, end: 20190313
  2. TRAMETINIB [Suspect]
     Active Substance: TRAMETINIB
     Indication: Malignant melanoma
     Dosage: 2 MILLIGRAM, ONCE A DAY
     Route: 048
     Dates: start: 20170921
  3. DABRAFENIB [Suspect]
     Active Substance: DABRAFENIB
     Indication: Malignant melanoma
     Dosage: 150 MILLIGRAM
     Route: 048
     Dates: start: 20170921
  4. SPARTALIZUMAB [Suspect]
     Active Substance: SPARTALIZUMAB
     Indication: Malignant melanoma
     Dosage: UNK (NO TREATMENT)
     Route: 065
  5. SPARTALIZUMAB [Suspect]
     Active Substance: SPARTALIZUMAB
     Dosage: 400 MILLIGRAM, ONCE A DAY
     Route: 042
     Dates: start: 20170921

REACTIONS (1)
  - Toxic skin eruption [Recovered/Resolved]

NARRATIVE: CASE EVENT DATE: 20190318
